FAERS Safety Report 25836745 (Version 1)
Quarter: 2025Q3

REPORT INFORMATION
  Report Type: Spontaneous
  Country: CN (occurrence: CN)
  Receive Date: 20250923
  Receipt Date: 20250923
  Transmission Date: 20251021
  Serious: Yes (Hospitalization)
  Sender: COHERUS
  Company Number: CN-SHANGHAI JUNSHI BIOSCIENCES CO., LTD.-CN2025015771

PATIENT

DRUGS (3)
  1. TORIPALIMAB [Suspect]
     Active Substance: TORIPALIMAB
     Indication: Tonsil cancer
     Route: 041
     Dates: start: 20250807, end: 20250807
  2. CARBOPLATIN [Concomitant]
     Active Substance: CARBOPLATIN
     Indication: Tonsil cancer
     Route: 041
     Dates: start: 20250807, end: 20250807
  3. PACLITAXEL [Concomitant]
     Active Substance: PACLITAXEL
     Indication: Tonsil cancer
     Route: 041
     Dates: start: 20250807, end: 20250807

REACTIONS (1)
  - Myelosuppression [Unknown]

NARRATIVE: CASE EVENT DATE: 20250816
